FAERS Safety Report 22386752 (Version 2)
Quarter: 2023Q2

REPORT INFORMATION
  Report Type: Other
  Country: US (occurrence: US)
  Receive Date: 20230531
  Receipt Date: 20230629
  Transmission Date: 20230721
  Serious: No
  Sender: FDA-Public Use
  Company Number: US-TOLMAR, INC.-23US041009

PATIENT
  Sex: Female

DRUGS (12)
  1. BETAMETHASONE DIPROPIONATE\CALCIPOTRIENE [Suspect]
     Active Substance: BETAMETHASONE DIPROPIONATE\CALCIPOTRIENE
     Indication: Psoriasis
     Dosage: 0.05%- 0.064%
     Route: 003
  2. METHOTREXATE [Suspect]
     Active Substance: METHOTREXATE
     Indication: Psoriasis
     Dosage: UNK
  3. FOLIC ACID [Suspect]
     Active Substance: FOLIC ACID
     Indication: Psoriasis
     Dosage: 1 MILLIGRAM
  4. BETAMETHASONE [Suspect]
     Active Substance: BETAMETHASONE
     Indication: Psoriasis
     Dosage: 0.05 % PERCENT
     Route: 003
  5. AMLODIPINE [Suspect]
     Active Substance: AMLODIPINE BESYLATE
     Indication: Psoriasis
     Dosage: 10 MILLIGRAM
  6. ASPIRIN [Suspect]
     Active Substance: ASPIRIN
     Indication: Psoriasis
     Dosage: 81 MILLIGRAM
  7. BETAMETHASONE DIPROPIONATE [Suspect]
     Active Substance: BETAMETHASONE DIPROPIONATE
     Indication: Psoriasis
     Dosage: 0.05 % PERCENT
     Route: 003
  8. COSENTYX [Suspect]
     Active Substance: SECUKINUMAB
     Indication: Psoriasis
     Dosage: 150 MG/ML PEN INJECTOR
     Route: 058
  9. LATANOPROST [Suspect]
     Active Substance: LATANOPROST
     Indication: Psoriasis
     Dosage: 0.005 % PERCENT
     Route: 047
  10. LISINOPRIL [Suspect]
     Active Substance: LISINOPRIL
     Indication: Psoriasis
     Dosage: 40 MILLIGRAM
     Route: 048
  11. PRAVASTATIN [Suspect]
     Active Substance: PRAVASTATIN
     Indication: Psoriasis
     Dosage: 10 MILLIGRAM
  12. VITAMIN D3 [Suspect]
     Active Substance: CHOLECALCIFEROL
     Indication: Psoriasis
     Dosage: 25 MICROGRAM
     Route: 048

REACTIONS (2)
  - Drug ineffective [Unknown]
  - Stress [Unknown]
